FAERS Safety Report 20069314 (Version 2)
Quarter: 2021Q4

REPORT INFORMATION
  Report Type: Spontaneous
  Country: CA (occurrence: CA)
  Receive Date: 20211115
  Receipt Date: 20211117
  Transmission Date: 20220303
  Serious: Yes (Hospitalization, Other)
  Sender: FDA-Public Use
  Company Number: CA-PFIZER INC-202101539183

PATIENT
  Age: 54 Year
  Sex: Male

DRUGS (12)
  1. SERTRALINE HYDROCHLORIDE [Interacting]
     Active Substance: SERTRALINE HYDROCHLORIDE
     Dosage: 5 MG, 1X/DAY
     Route: 065
  2. SERTRALINE HYDROCHLORIDE [Interacting]
     Active Substance: SERTRALINE HYDROCHLORIDE
     Dosage: 25 MG, 1X/DAY
     Route: 065
  3. SERTRALINE HYDROCHLORIDE [Interacting]
     Active Substance: SERTRALINE HYDROCHLORIDE
     Dosage: 50 MG, 1X/DAY
     Route: 065
  4. SERTRALINE HYDROCHLORIDE [Interacting]
     Active Substance: SERTRALINE HYDROCHLORIDE
     Dosage: 75 MG, 1X/DAY
     Route: 065
  5. COBICISTAT\ELVITEGRAVIR\EMTRICITABINE\TENOFOVIR [Interacting]
     Active Substance: COBICISTAT\ELVITEGRAVIR\EMTRICITABINE\TENOFOVIR
     Indication: HIV infection
     Route: 065
  6. QUETIAPINE [Interacting]
     Active Substance: QUETIAPINE
     Dosage: UNK
     Route: 065
  7. QUETIAPINE [Interacting]
     Active Substance: QUETIAPINE
     Dosage: UNK
     Route: 065
  8. RISPERDAL [Interacting]
     Active Substance: RISPERIDONE
     Dosage: 5 MG, 1X/DAY
     Route: 065
  9. RISPERDAL [Interacting]
     Active Substance: RISPERIDONE
     Dosage: 3 MG, 1X/DAY
     Route: 065
  10. RISPERDAL [Interacting]
     Active Substance: RISPERIDONE
     Dosage: 4 MG, 1X/DAY
     Route: 065
  11. RISPERDAL [Interacting]
     Active Substance: RISPERIDONE
     Dosage: 2 MG, 1X/DAY
     Route: 065
  12. DESVENLAFAXINE SUCCINATE [Interacting]
     Active Substance: DESVENLAFAXINE SUCCINATE
     Route: 065

REACTIONS (6)
  - Drug interaction [Not Recovered/Not Resolved]
  - Hyperhidrosis [Not Recovered/Not Resolved]
  - Major depression [Not Recovered/Not Resolved]
  - Musculoskeletal stiffness [Not Recovered/Not Resolved]
  - Neuroleptic malignant syndrome [Not Recovered/Not Resolved]
  - Pyrexia [Not Recovered/Not Resolved]
